FAERS Safety Report 17754645 (Version 1)
Quarter: 2020Q2

REPORT INFORMATION
  Report Type: Spontaneous
  Country: US (occurrence: US)
  Receive Date: 20200506
  Receipt Date: 20200506
  Transmission Date: 20200714
  Serious: No
  Sender: FDA-Public Use
  Company Number: US-INSUD PHARMA-2004US00064

PATIENT

DRUGS (1)
  1. BENZNIDAZOLE. [Suspect]
     Active Substance: BENZNIDAZOLE
     Indication: CHAGAS^ CARDIOMYOPATHY
     Dosage: 2 TABLETS (200 MG) EVERY 12 HOURS
     Route: 048
     Dates: start: 202004, end: 202004

REACTIONS (3)
  - Rash [Unknown]
  - Intentional product use issue [Unknown]
  - Pyrexia [Unknown]

NARRATIVE: CASE EVENT DATE: 202004
